FAERS Safety Report 7040280-X (Version None)
Quarter: 2010Q4

REPORT INFORMATION
  Report Type: 
  Country: None (occurrence: None)
  Receive Date: 20101012
  Receipt Date: 20100930
  Transmission Date: 20110411
  Serious: Yes (Other)
  Sender: FDA-Public Use
  Company Number: FR-PFIZER INC-2010124261

PATIENT
  Age: 72 Year
  Sex: Male

DRUGS (6)
  1. LYRICA [Suspect]
     Dosage: 150 MG, 1X/DAY (6 DOSE FORMS OF 25 MG)
     Route: 048
  2. LYRICA [Suspect]
     Dosage: 900 MG, 1X/DAY (6 DOSE FORMS OF 150 MG INSTEAD OF 6 DOSE FORMS OF 25 MG)
     Route: 048
     Dates: start: 20100919
  3. TRAMADOL [Concomitant]
     Dosage: UNK
  4. AMITRIPTYLINE HCL [Concomitant]
     Dosage: UNK
  5. SINTROM [Concomitant]
     Dosage: UNK
  6. VELCADE [Concomitant]
     Indication: MULTIPLE MYELOMA
     Dosage: UNK

REACTIONS (5)
  - ATAXIA [None]
  - INCORRECT DOSE ADMINISTERED [None]
  - MEDICATION ERROR [None]
  - SOMNOLENCE [None]
  - WRONG DRUG ADMINISTERED [None]
